FAERS Safety Report 8456446-8 (Version None)
Quarter: 2012Q2

REPORT INFORMATION
  Report Type: 
  Country: None (occurrence: None)
  Receive Date: 20120621
  Receipt Date: 20120612
  Transmission Date: 20120825
  Serious: Yes (Hospitalization)
  Sender: FDA-Public Use
  Company Number: US-ROCHE-1078070

PATIENT
  Age: 50 Year
  Sex: Female
  Weight: 54.48 kg

DRUGS (1)
  1. HERCEPTIN [Suspect]
     Indication: BREAST CANCER
     Route: 042
     Dates: start: 20120501

REACTIONS (4)
  - ABDOMINAL DISTENSION [None]
  - SALIVARY HYPERSECRETION [None]
  - BLOOD SODIUM DECREASED [None]
  - GASTROOESOPHAGEAL REFLUX DISEASE [None]
